FAERS Safety Report 4630884-3 (Version None)
Quarter: 2005Q2

REPORT INFORMATION
  Report Type: 
  Country: None (occurrence: None)
  Receive Date: 20050404
  Receipt Date: 20050404
  Transmission Date: 20051028
  Serious: Yes (Disabling)
  Sender: FDA-Public Use
  Company Number: None

PATIENT
  Age: 29 Year
  Sex: Female
  Weight: 108.8633 kg

DRUGS (4)
  1. ZOLOFT [Suspect]
     Indication: OBSESSIVE-COMPULSIVE DISORDER
     Dosage: 200 MG ONCE A DAY
     Dates: start: 20030101
  2. ADDERALL 20 [Concomitant]
  3. STRATTERA [Concomitant]
  4. SYNTHROID [Concomitant]

REACTIONS (4)
  - ANGER [None]
  - HYPERVENTILATION [None]
  - MAJOR DEPRESSION [None]
  - PANIC ATTACK [None]
